FAERS Safety Report 8393120-0 (Version None)
Quarter: 2012Q2

REPORT INFORMATION
  Report Type: 
  Country: None (occurrence: None)
  Receive Date: 20120529
  Receipt Date: 20120424
  Transmission Date: 20120825
  Serious: No
  Sender: FDA-Public Use
  Company Number: US-ABBOTT-12P-163-0929196-00

PATIENT
  Sex: Male
  Weight: 68.1 kg

DRUGS (5)
  1. VITAMIN D [Concomitant]
     Indication: VITAMIN D DECREASED
  2. COUMADIN [Concomitant]
     Indication: THROMBOSIS PROPHYLAXIS
  3. ANDROGEL [Suspect]
     Indication: BLOOD TESTOSTERONE DECREASED
     Dates: start: 20120421
  4. ANDROGEL [Suspect]
     Indication: BLOOD TESTOSTERONE DECREASED
     Dates: start: 20100101, end: 20120420
  5. VITAMIN B-12 [Concomitant]
     Indication: VITAMIN B12 DECREASED

REACTIONS (2)
  - HYPERAESTHESIA [None]
  - PRURITUS [None]
